FAERS Safety Report 8470189-6 (Version None)
Quarter: 2012Q2

REPORT INFORMATION
  Report Type: 
  Country: None (occurrence: None)
  Receive Date: 20120621
  Receipt Date: 20120621
  Transmission Date: 20120825
  Serious: Yes (Other)
  Sender: FDA-Public Use
  Company Number: None

PATIENT
  Sex: Female

DRUGS (5)
  1. CINTHROID [Concomitant]
  2. PREDNISONE [Concomitant]
  3. NEURONTIN [Suspect]
     Indication: MYALGIA
     Dosage: 800MG PO
     Route: 048
     Dates: start: 20120524, end: 20120620
  4. NEURONTIN [Suspect]
     Indication: ARTHRALGIA
     Dosage: 800MG PO
     Route: 048
     Dates: start: 20120524, end: 20120620
  5. ZOLOFT [Concomitant]

REACTIONS (5)
  - CONFUSIONAL STATE [None]
  - MENTAL STATUS CHANGES [None]
  - RASH [None]
  - INSOMNIA [None]
  - FEELING ABNORMAL [None]
